FAERS Safety Report 4567446-2 (Version None)
Quarter: 2005Q1

REPORT INFORMATION
  Report Type: 
  Country: None (occurrence: None)
  Receive Date: 20050127
  Receipt Date: 20050117
  Transmission Date: 20050727
  Serious: Yes (Other)
  Sender: FDA-Public Use
  Company Number: 2005015199

PATIENT
  Sex: Male

DRUGS (5)
  1. DIFLUCAN [Suspect]
     Indication: EAR DISORDER
     Dosage: 100 MG (100 MG, 1 IN 1 D), INTRAVENOUS
     Route: 042
  2. DIFLUCAN [Suspect]
     Indication: LARYNGEAL DISORDER
     Dosage: 100 MG (100 MG, 1 IN 1 D), INTRAVENOUS
     Route: 042
  3. DIFLUCAN [Suspect]
     Indication: NASAL DISORDER
     Dosage: 100 MG (100 MG, 1 IN 1 D), INTRAVENOUS
     Route: 042
  4. UNACID (AMPICILLIN SODIUM, SULBACTAM SODIUM) [Concomitant]
  5. MEFENAMIC ACID [Concomitant]

REACTIONS (2)
  - ANURIA [None]
  - RENAL IMPAIRMENT [None]
